FAERS Safety Report 22115733 (Version 1)
Quarter: 2023Q1

REPORT INFORMATION
  Report Type: Spontaneous
  Country: CN (occurrence: CN)
  Receive Date: 20230320
  Receipt Date: 20230320
  Transmission Date: 20230418
  Serious: Yes (Hospitalization, Other)
  Sender: FDA-Public Use
  Company Number: CN-ELI_LILLY_AND_COMPANY-CN202303004335

PATIENT
  Age: 70 Year
  Sex: Male
  Weight: 52 kg

DRUGS (2)
  1. ALIMTA [Suspect]
     Active Substance: PEMETREXED DISODIUM
     Indication: Chemotherapy
     Dosage: 0.75 G, SINGLE
     Route: 041
     Dates: start: 20230213, end: 20230213
  2. SODIUM CHLORIDE [Concomitant]
     Active Substance: SODIUM CHLORIDE
     Indication: Vehicle solution use
     Dosage: 100 ML, SINGLE
     Route: 041
     Dates: start: 20230213, end: 20230213

REACTIONS (5)
  - Haemorrhage subcutaneous [Recovering/Resolving]
  - Epistaxis [Recovering/Resolving]
  - Ecchymosis [Recovering/Resolving]
  - Myelosuppression [Recovering/Resolving]
  - Thrombocytopenia [Recovering/Resolving]

NARRATIVE: CASE EVENT DATE: 20230228
